FAERS Safety Report 24399485 (Version 2)
Quarter: 2024Q4

REPORT INFORMATION
  Report Type: Spontaneous
  Country: DE (occurrence: DE)
  Receive Date: 20241005
  Receipt Date: 20241007
  Transmission Date: 20250114
  Serious: Yes (Death, Hospitalization, Other)
  Sender: JOHNSON AND JOHNSON
  Company Number: DE-JNJFOC-20241008859

PATIENT
  Age: 25 Year
  Sex: Female

DRUGS (2)
  1. LOPERAMIDE HYDROCHLORIDE [Interacting]
     Active Substance: LOPERAMIDE HYDROCHLORIDE
     Indication: Gastroenteritis
     Dosage: TWO TIMES A DAY (3X2 MG PER DAY) (TOOK TWO 2MG TABLETS, TOOK ONE 2 MG TABLET))
     Route: 048
  2. IBUPROFEN [Interacting]
     Active Substance: IBUPROFEN
     Indication: Abdominal pain
     Route: 048

REACTIONS (7)
  - Brain death [Fatal]
  - Poisoning [Fatal]
  - Drug interaction [Fatal]
  - Brain injury [Fatal]
  - Circulatory collapse [Fatal]
  - Unresponsive to stimuli [Fatal]
  - Food interaction [Fatal]
